FAERS Safety Report 6420021-7 (Version None)
Quarter: 2009Q4

REPORT INFORMATION
  Report Type: 
  Country: None (occurrence: None)
  Receive Date: 20091029
  Receipt Date: 20090313
  Transmission Date: 20100525
  Serious: No
  Sender: FDA-Public Use
  Company Number: A0758968A

PATIENT
  Age: 58 Year
  Sex: Female

DRUGS (3)
  1. IMITREX [Suspect]
     Indication: MIGRAINE
     Route: 045
  2. SUMATRIPTAN SUCCINATE [Suspect]
     Indication: MIGRAINE
     Dosage: 100MG AS REQUIRED
     Route: 048
     Dates: start: 20081101
  3. NO CONCURRENT MEDICATION [Concomitant]

REACTIONS (3)
  - IMPAIRED WORK ABILITY [None]
  - NAUSEA [None]
  - PRODUCT QUALITY ISSUE [None]
